FAERS Safety Report 9925317 (Version 1)
Quarter: 2014Q1

REPORT INFORMATION
  Report Type: Spontaneous
  Country: GB (occurrence: GB)
  Receive Date: 20140226
  Receipt Date: 20140226
  Transmission Date: 20141002
  Serious: Yes (Hospitalization)
  Sender: FDA-Public Use
  Company Number: GB-WATSON-2014-03074

PATIENT
  Age: 65 Year
  Sex: Female

DRUGS (1)
  1. NAPROXEN (UNKNOWN) [Suspect]
     Indication: PAIN
     Dosage: 500 MG, BID
     Route: 048
     Dates: start: 20140127, end: 20140130

REACTIONS (1)
  - Asthma [Recovering/Resolving]
